FAERS Safety Report 15396070 (Version 2)
Quarter: 2018Q4

REPORT INFORMATION
  Report Type: Report from Study
  Country: PA (occurrence: PA)
  Receive Date: 20180918
  Receipt Date: 20181002
  Transmission Date: 20190204
  Serious: Yes (Other)
  Sender: FDA-Public Use
  Company Number: PHHY2016PA022451

PATIENT
  Age: 23 Year
  Sex: Male

DRUGS (1)
  1. EXJADE [Suspect]
     Active Substance: DEFERASIROX
     Indication: PRODUCT USED FOR UNKNOWN INDICATION
     Dosage: 4 DF, QD
     Route: 048

REACTIONS (14)
  - Asthenia [Unknown]
  - Contusion [Unknown]
  - Weight increased [Unknown]
  - Pain in extremity [Unknown]
  - Discomfort [Not Recovered/Not Resolved]
  - Malaise [Unknown]
  - Haemoglobin decreased [Unknown]
  - Pyrexia [Unknown]
  - Gastroenteritis bacterial [Unknown]
  - Nasopharyngitis [Unknown]
  - Emotional disorder [Unknown]
  - Abdominal pain [Unknown]
  - Road traffic accident [Unknown]
  - Serum ferritin increased [Unknown]
